FAERS Safety Report 10420986 (Version 1)
Quarter: 2014Q3

REPORT INFORMATION
  Report Type: Spontaneous
  Country: GB (occurrence: None)
  Receive Date: 20140828
  Receipt Date: 20140828
  Transmission Date: 20150326
  Serious: Yes (Death, Hospitalization, Other)
  Sender: FDA-Public Use
  Company Number: CL-583-2014

PATIENT
  Age: 67 Year
  Sex: Male

DRUGS (11)
  1. CARVEDILOL. [Concomitant]
     Active Substance: CARVEDILOL
  2. CANRENON [Concomitant]
  3. DIGOXIN. [Concomitant]
     Active Substance: DIGOXIN
  4. PANTOPRAZOLE [Concomitant]
     Active Substance: PANTOPRAZOLE SODIUM
  5. MIDAZOLAM [Suspect]
     Active Substance: MIDAZOLAM\MIDAZOLAM HYDROCHLORIDE
     Indication: SEDATION
  6. INSULIN [Concomitant]
     Active Substance: INSULIN NOS
  7. ATORVASTATIN UNKNOWN MANUFACTURER [Suspect]
     Active Substance: ATORVASTATIN
  8. ATORVASTATIN [Concomitant]
     Active Substance: ATORVASTATIN
  9. RAMIPRIL. [Concomitant]
     Active Substance: RAMIPRIL
  10. DUOPLAVIN [Concomitant]
     Active Substance: ASPIRIN\CLOPIDOGREL
  11. FUROSEMIDE. [Concomitant]
     Active Substance: FUROSEMIDE

REACTIONS (6)
  - Electrocardiogram QT prolonged [None]
  - Drug interaction [None]
  - Electrocardiogram ST-T change [None]
  - Metabolic acidosis [None]
  - Rhabdomyolysis [None]
  - Disseminated intravascular coagulation [None]
